FAERS Safety Report 5329513-5 (Version None)
Quarter: 2007Q1

REPORT INFORMATION
  Report Type: 
  Country: None (occurrence: None)
  Receive Date: 20070223
  Receipt Date: 20060308
  Transmission Date: 20070707
  Serious: Yes (Life-Threatening, Hospitalization, Disabling, Other)
  Sender: FDA-Public Use
  Company Number: WAES 0603USA01436

PATIENT
  Age: 79 Year
  Sex: Female
  Weight: 78.9259 kg

DRUGS (5)
  1. ZOCOR [Suspect]
     Indication: DYSLIPIDAEMIA
     Dosage: 80 MG/DAILY/PO
     Route: 048
     Dates: start: 20060101, end: 20060207
  2. ZOCOR [Suspect]
     Indication: HYPERLIPIDAEMIA
     Dosage: 80 MG/DAILY/PO
     Route: 048
     Dates: start: 20060101, end: 20060207
  3. ADVAIR DISKUS 100/50 [Concomitant]
  4. PRINIVIL [Concomitant]
  5. VERELAN [Concomitant]

REACTIONS (1)
  - RHABDOMYOLYSIS [None]
